FAERS Safety Report 5803810-9 (Version None)
Quarter: 2008Q3

REPORT INFORMATION
  Report Type: 
  Country: None (occurrence: None)
  Receive Date: 20080708
  Receipt Date: 20080701
  Transmission Date: 20090109
  Serious: Yes (Hospitalization)
  Sender: FDA-Public Use
  Company Number: US-GILEAD-2008-0016507

PATIENT
  Sex: Female

DRUGS (20)
  1. LETAIRIS [Suspect]
     Indication: PULMONARY HYPERTENSION
     Dates: start: 20070901
  2. TOPROL-XL [Concomitant]
  3. CARDIZEM [Concomitant]
  4. LASIX [Concomitant]
  5. ASPIRIN [Concomitant]
  6. BENICAR HCT [Concomitant]
  7. TRICOR [Concomitant]
  8. ZETIA [Concomitant]
  9. GLIPIZIDE [Concomitant]
  10. LANTUS [Concomitant]
     Dosage: 48 UNITS
     Route: 058
  11. JANUVIA [Concomitant]
  12. PENTOXIFILLIN [Concomitant]
  13. ORPRANADRINE [Concomitant]
  14. CELEBREX [Concomitant]
  15. GABAPENTIN [Concomitant]
  16. ELAVIL [Concomitant]
  17. TRAZODONE HCL [Concomitant]
  18. FENTANYL TRANSDERMAL SYSTEM [Concomitant]
     Route: 062
  19. DIAZEPAM [Concomitant]
  20. PEPCID [Concomitant]

REACTIONS (3)
  - CARDIAC FAILURE CONGESTIVE [None]
  - CHRONIC OBSTRUCTIVE PULMONARY DISEASE [None]
  - PNEUMONIA [None]
